FAERS Safety Report 4359487-5 (Version None)
Quarter: 2004Q2

REPORT INFORMATION
  Report Type: 
  Country: None (occurrence: None)
  Receive Date: 20040512
  Receipt Date: 20040430
  Transmission Date: 20050107
  Serious: Yes (Death)
  Sender: FDA-Public Use
  Company Number: 163-20785-04020568

PATIENT
  Age: 53 Year
  Sex: Male

DRUGS (1)
  1. THALOMID [Suspect]
     Indication: GLIOBLASTOMA MULTIFORME
     Dosage: 200 MG DAILY ORAL
     Route: 048
     Dates: start: 20031103, end: 20031228

REACTIONS (4)
  - BONE MARROW DEPRESSION [None]
  - BRAIN NEOPLASM MALIGNANT [None]
  - NEOPLASM PROGRESSION [None]
  - PNEUMONIA [None]
